FAERS Safety Report 12308073 (Version 1)
Quarter: 2016Q2

REPORT INFORMATION
  Report Type: Spontaneous
  Country: US (occurrence: US)
  Receive Date: 20160426
  Receipt Date: 20160426
  Transmission Date: 20160815
  Serious: No
  Sender: FDA-Public Use
  Company Number: US-SHIRE-US201605114

PATIENT
  Sex: Male

DRUGS (5)
  1. VYVANSE [Suspect]
     Active Substance: LISDEXAMFETAMINE DIMESYLATE
     Indication: PRODUCT USED FOR UNKNOWN INDICATION
     Dosage: 40 MG, 1X/DAY:QD
     Route: 048
     Dates: start: 201604, end: 20160421
  2. VYVANSE [Suspect]
     Active Substance: LISDEXAMFETAMINE DIMESYLATE
     Dosage: 60 MG, 1X/DAY:QD
     Route: 048
     Dates: start: 20160422
  3. ULTRAM [Concomitant]
     Active Substance: TRAMADOL HYDROCHLORIDE
     Indication: PAIN
     Dosage: 400 MG, AS REQ^D DAILY
     Route: 048
  4. IBUPROFEN. [Concomitant]
     Active Substance: IBUPROFEN
     Indication: PAIN
     Dosage: 800 MG, AS REQ^D DAILY
     Route: 048
  5. KLONOPIN [Concomitant]
     Active Substance: CLONAZEPAM
     Indication: ANXIETY
     Dosage: 3 MG, AS REQ^D DAILY
     Route: 048

REACTIONS (6)
  - Fatigue [Unknown]
  - Drug effect variable [Unknown]
  - Anxiety [Unknown]
  - Irritability [Unknown]
  - Drug effect increased [Unknown]
  - Decreased appetite [Unknown]

NARRATIVE: CASE EVENT DATE: 201604
